FAERS Safety Report 8785324 (Version 6)
Quarter: 2018Q3

REPORT INFORMATION
  Report Type: Spontaneous
  Country: GB (occurrence: GB)
  Receive Date: 20120914
  Receipt Date: 20180903
  Transmission Date: 20181010
  Serious: Yes (Hospitalization)
  Sender: FDA-Public Use
  Company Number: GB-009507513-1208GBR009213

PATIENT
  Age: 31 Year
  Sex: Female

DRUGS (1)
  1. NEXPLANON [Suspect]
     Active Substance: ETONOGESTREL
     Dosage: 68 MG, UNKNOWN
     Route: 059
     Dates: start: 20100304

REACTIONS (6)
  - Abdominal pain [Unknown]
  - Peritonitis [Unknown]
  - Pregnancy with implant contraceptive [Unknown]
  - Ectopic pregnancy [Recovered/Resolved with Sequelae]
  - Bile duct obstruction [Unknown]
  - Syncope [Unknown]

NARRATIVE: CASE EVENT DATE: 20120417
